FAERS Safety Report 10342542 (Version 1)
Quarter: 2014Q3

REPORT INFORMATION
  Report Type: Spontaneous
  Country: US (occurrence: US)
  Receive Date: 20140725
  Receipt Date: 20140725
  Transmission Date: 20150326
  Serious: Yes (Other)
  Sender: FDA-Public Use
  Company Number: US-BAYER-2014-104988

PATIENT
  Age: 32 Year
  Sex: Female
  Weight: 63.95 kg

DRUGS (2)
  1. CAMPHO-PHENIQUE ANTISEPTIC LIQUID [Suspect]
     Active Substance: CAMPHORATED PHENOL
     Indication: ARTHROPOD BITE
     Dosage: 1 DOSE, PRN
     Route: 061
     Dates: start: 2011, end: 20140710
  2. ONE A DAY WOMEN^S [Concomitant]
     Active Substance: MINERALS\VITAMINS

REACTIONS (2)
  - Urticaria [Not Recovered/Not Resolved]
  - Abasia [Not Recovered/Not Resolved]

NARRATIVE: CASE EVENT DATE: 20140710
